FAERS Safety Report 12554253 (Version 1)
Quarter: 2016Q3

REPORT INFORMATION
  Report Type: Spontaneous
  Country: BR (occurrence: BR)
  Receive Date: 20160713
  Receipt Date: 20160713
  Transmission Date: 20161109
  Serious: Yes (Other)
  Sender: FDA-Public Use
  Company Number: BR-SA-2016SA076345

PATIENT
  Sex: Female

DRUGS (1)
  1. CLEXANE [Suspect]
     Active Substance: ENOXAPARIN SODIUM
     Indication: PROPHYLAXIS OF ABORTION
     Dosage: CLEXANE 40MG
     Route: 042

REACTIONS (6)
  - Abortion missed [Unknown]
  - Erythema [Not Recovered/Not Resolved]
  - Exposure during pregnancy [Unknown]
  - Injection site irritation [Recovered/Resolved]
  - Injection site pruritus [Recovered/Resolved]
  - Injection site erythema [Recovered/Resolved]
